FAERS Safety Report 10481876 (Version 1)
Quarter: 2014Q3

REPORT INFORMATION
  Report Type: Spontaneous
  Country: US (occurrence: US)
  Receive Date: 20140929
  Receipt Date: 20140929
  Transmission Date: 20150326
  Serious: Yes (Hospitalization, Other)
  Sender: FDA-Public Use
  Company Number: PHEH2014US019119

PATIENT
  Age: 61 Year
  Sex: Female

DRUGS (11)
  1. AREDIA [Suspect]
     Active Substance: PAMIDRONATE DISODIUM
     Indication: NEOPLASM MALIGNANT
     Dates: start: 200504, end: 200606
  2. MORPHINE [Concomitant]
     Active Substance: MORPHINE
  3. LUNESTA [Concomitant]
     Active Substance: ESZOPICLONE
     Dosage: 3 MG, QD
  4. ALTACE [Concomitant]
     Active Substance: RAMIPRIL
     Dosage: 2.5 MG, QD
  5. BABY ASPIRIN [Concomitant]
     Active Substance: ASPIRIN
     Dosage: 81 MG, QD
  6. SINGULAIR [Concomitant]
     Active Substance: MONTELUKAST SODIUM
     Dosage: 10 MG, QD
  7. MOBIC [Concomitant]
     Active Substance: MELOXICAM
     Dosage: 7.5 MG, QD
  8. DIGOXIN. [Concomitant]
     Active Substance: DIGOXIN
     Dosage: 0.125 MG, QD
  9. ZOMETA [Suspect]
     Active Substance: ZOLEDRONIC ACID
     Indication: NEOPLASM MALIGNANT
     Dosage: 4 MG, QMO
     Route: 042
  10. ALBUTEROL. [Concomitant]
     Active Substance: ALBUTEROL
     Dosage: 90 MCG/ML, UNK
  11. PREDNISONE. [Concomitant]
     Active Substance: PREDNISONE
     Dosage: 20 MG, QD

REACTIONS (29)
  - Dental caries [Unknown]
  - Periodontal disease [Unknown]
  - Exposed bone in jaw [Unknown]
  - Osteomyelitis [Unknown]
  - Chest pain [Unknown]
  - Cough [Unknown]
  - Chronic obstructive pulmonary disease [Unknown]
  - Restless legs syndrome [Unknown]
  - Pain [Unknown]
  - Jaw disorder [Unknown]
  - Large intestine perforation [Unknown]
  - Discomfort [Unknown]
  - Nausea [Unknown]
  - Respiratory disorder [Unknown]
  - Osteitis [Unknown]
  - Infection [Unknown]
  - Bone disorder [Unknown]
  - Migraine [Unknown]
  - Gastrooesophageal reflux disease [Unknown]
  - Osteonecrosis of jaw [Unknown]
  - Hip fracture [Unknown]
  - Anaemia [Unknown]
  - Arthritis [Unknown]
  - Fungal infection [Unknown]
  - Sleep disorder [Unknown]
  - Depression [Unknown]
  - Neuralgia [Unknown]
  - Oral mucosa erosion [Unknown]
  - Respiratory tract congestion [Unknown]

NARRATIVE: CASE EVENT DATE: 200512
